FAERS Safety Report 4942025-3 (Version None)
Quarter: 2006Q1

REPORT INFORMATION
  Report Type: 
  Country: None (occurrence: None)
  Receive Date: 20060313
  Receipt Date: 20050110
  Transmission Date: 20060701
  Serious: Yes (Other)
  Sender: FDA-Public Use
  Company Number: US-MERCK-0501USA03381

PATIENT
  Age: 57 Year
  Sex: Male

DRUGS (2)
  1. VIOXX [Suspect]
     Indication: ANALGESIC EFFECT
     Route: 048
     Dates: start: 20021211, end: 20030605
  2. VIOXX [Suspect]
     Route: 048
     Dates: start: 20040301, end: 20040901

REACTIONS (1)
  - CEREBROVASCULAR ACCIDENT [None]
